FAERS Safety Report 9316393 (Version 1)
Quarter: 2013Q2

REPORT INFORMATION
  Report Type: Report from Study
  Country: IT (occurrence: IT)
  Receive Date: 20130530
  Receipt Date: 20130530
  Transmission Date: 20140414
  Serious: Yes (Hospitalization)
  Sender: FDA-Public Use
  Company Number: IT-BAYER-2013-034119

PATIENT
  Age: 53 Year
  Sex: Male
  Weight: 65 kg

DRUGS (8)
  1. REGORAFENIB [Suspect]
     Indication: COLORECTAL CANCER METASTATIC
     Dosage: 160 MG, QD
     Route: 048
     Dates: start: 20121010, end: 20130304
  2. REGORAFENIB [Suspect]
     Indication: COLORECTAL CANCER METASTATIC
     Dosage: 160 MG, TOTAL DAILY DOSE
     Route: 048
     Dates: start: 20121010, end: 20121030
  3. REGORAFENIB [Suspect]
     Indication: COLORECTAL CANCER METASTATIC
     Dosage: 160 MG, TOTAL DAILY DOSE
     Route: 048
     Dates: start: 20121107, end: 20121127
  4. REGORAFENIB [Suspect]
     Indication: COLORECTAL CANCER METASTATIC
     Dosage: 160 MG, TOTAL DAILY DOSE
     Route: 048
     Dates: start: 20121205, end: 20121225
  5. REGORAFENIB [Suspect]
     Indication: COLORECTAL CANCER METASTATIC
     Dosage: 160 MG, TOTAL DAILY DOSE
     Route: 048
     Dates: start: 20130104, end: 20130125
  6. REGORAFENIB [Suspect]
     Indication: COLORECTAL CANCER METASTATIC
     Dosage: 160 MG, TOTAL DAILY DOSE
     Route: 048
     Dates: start: 20130201, end: 20130221
  7. REGORAFENIB [Suspect]
     Indication: COLORECTAL CANCER METASTATIC
     Dosage: 0 MG
     Dates: start: 20130304, end: 20130320
  8. TRIATEC [Concomitant]
     Indication: HYPERTENSION
     Dosage: DAILY DOSE 10 MG
     Route: 048
     Dates: start: 200902

REACTIONS (1)
  - Liver abscess [Recovered/Resolved with Sequelae]
